FAERS Safety Report 8255897-4 (Version None)
Quarter: 2012Q2

REPORT INFORMATION
  Report Type: 
  Country: None (occurrence: None)
  Receive Date: 20120403
  Receipt Date: 20120328
  Transmission Date: 20120825
  Serious: Yes (Hospitalization, Other)
  Sender: FDA-Public Use
  Company Number: US-AMGEN-USASP2011045882

PATIENT
  Age: 64 Year
  Sex: Male
  Weight: 89 kg

DRUGS (1)
  1. ENBREL [Suspect]
     Indication: RHEUMATOID ARTHRITIS
     Dosage: 50 MG, QWK
     Route: 058
     Dates: start: 20090301, end: 20110623

REACTIONS (9)
  - PNEUMONIA [None]
  - MYELODYSPLASTIC SYNDROME [None]
  - BRONCHITIS [None]
  - PLEURISY [None]
  - THROMBOCYTOPENIA [None]
  - ANAEMIA [None]
  - INFECTION [None]
  - EOSINOPHILIA [None]
  - WHITE BLOOD CELL COUNT DECREASED [None]
